FAERS Safety Report 7007196-6 (Version None)
Quarter: 2010Q3

REPORT INFORMATION
  Report Type: 
  Country: None (occurrence: None)
  Receive Date: 20100922
  Receipt Date: 20100916
  Transmission Date: 20110219
  Serious: Yes (Other)
  Sender: FDA-Public Use
  Company Number: US-BAYER-201020118BCC

PATIENT
  Age: 67 Year
  Sex: Male
  Weight: 91 kg

DRUGS (2)
  1. ASPIRIN [Suspect]
     Indication: HEADACHE
     Dosage: CONSUMER TOOK A HALF TO A WHOLE TABLET
     Route: 048
  2. ASPIRIN [Suspect]
     Indication: ISCHAEMIC HEART DISEASE PROPHYLAXIS
     Dosage: AS USED: 81 MG  UNIT DOSE: 81 MG
     Route: 048

REACTIONS (3)
  - CONSTIPATION [None]
  - GASTRIC HAEMORRHAGE [None]
  - HAEMATOCHEZIA [None]
